FAERS Safety Report 8917692 (Version 1)
Quarter: 2012Q4

REPORT INFORMATION
  Report Type: 
  Country: US (occurrence: US)
  Receive Date: 20121119
  Receipt Date: 20121119
  Transmission Date: 20130627
  Serious: No
  Sender: FDA-Public Use
  Company Number: US-009507513-1211USA006466

PATIENT
  Age: 8 Year
  Sex: Male
  Weight: 26.3 kg

DRUGS (3)
  1. CLARITIN CHEWABLE TABLETS [Suspect]
     Indication: SEASONAL ALLERGY
     Dosage: 5 mg, qd
     Route: 048
  2. CLARITIN CHEWABLE TABLETS [Suspect]
     Dosage: 10 mg, Once
     Route: 048
     Dates: start: 20120902
  3. SINGULAIR [Concomitant]
     Indication: PRODUCT USED FOR UNKNOWN INDICATION
     Dosage: UNK, Unknown

REACTIONS (1)
  - Overdose [Unknown]
